FAERS Safety Report 9028610 (Version 7)
Quarter: 2014Q4

REPORT INFORMATION
  Report Type: Spontaneous
  Country: JP (occurrence: JP)
  Receive Date: 20130124
  Receipt Date: 20141022
  Transmission Date: 20150529
  Serious: Yes (Hospitalization, Disabling)
  Sender: FDA-Public Use
  Company Number: JP-ROCHE-1181629

PATIENT
  Age: 57 Year
  Sex: Male
  Weight: 73.09 kg

DRUGS (4)
  1. LUCENTIS [Suspect]
     Active Substance: RANIBIZUMAB
     Indication: AGE-RELATED MACULAR DEGENERATION
     Route: 031
     Dates: start: 20100715, end: 20100715
  2. LUCENTIS [Suspect]
     Active Substance: RANIBIZUMAB
     Route: 031
     Dates: start: 20110115
  3. LUCENTIS [Suspect]
     Active Substance: RANIBIZUMAB
     Route: 031
     Dates: start: 20130625, end: 20130625
  4. LUCENTIS [Suspect]
     Active Substance: RANIBIZUMAB
     Route: 031
     Dates: start: 20130528

REACTIONS (1)
  - Vitreous haemorrhage [Recovered/Resolved with Sequelae]

NARRATIVE: CASE EVENT DATE: 20100728
